FAERS Safety Report 11214364 (Version 1)
Quarter: 2015Q2

REPORT INFORMATION
  Report Type: Report from Study
  Country: MX (occurrence: MX)
  Receive Date: 20150624
  Receipt Date: 20150624
  Transmission Date: 20150821
  Serious: Yes (Death)
  Sender: FDA-Public Use
  Company Number: MX-ROCHE-1596625

PATIENT
  Age: 65 Year
  Sex: Female
  Weight: 62 kg

DRUGS (2)
  1. DOCETAXEL. [Suspect]
     Active Substance: DOCETAXEL
     Indication: BREAST CANCER
     Dosage: 1 CYCLE EVERY 21 DAYS (11 CYCLES USED)
     Route: 065
     Dates: start: 20140708, end: 20150527
  2. HERCEPTIN [Suspect]
     Active Substance: TRASTUZUMAB
     Indication: BREAST CANCER
     Dosage: 1 CYCLE EVERY 21 DAYS (11 CYCLES USED)
     Route: 065
     Dates: start: 20140708, end: 20150527

REACTIONS (1)
  - Death [Fatal]
